FAERS Safety Report 6754620-X (Version None)
Quarter: 2010Q2

REPORT INFORMATION
  Report Type: 
  Country: None (occurrence: None)
  Receive Date: 20100603
  Receipt Date: 20100524
  Transmission Date: 20101027
  Serious: Yes (Other)
  Sender: FDA-Public Use
  Company Number: AU-ABBOTT-10P-008-0646964-00

PATIENT
  Sex: Male
  Weight: 104 kg

DRUGS (13)
  1. HYTRIN [Suspect]
     Indication: ESSENTIAL HYPERTENSION
     Dosage: DAILY
     Dates: start: 20090129
  2. HYTRIN [Suspect]
  3. HYTRIN [Suspect]
     Dates: start: 20090208, end: 20090217
  4. SPIRIVA [Suspect]
     Indication: DRUG USE FOR UNKNOWN INDICATION
  5. ALDACTONE [Concomitant]
     Indication: CARDIAC FAILURE CONGESTIVE
  6. AVAPRO HCT 150/12.5 [Concomitant]
     Indication: ARRHYTHMIA
  7. CORDILOX SR [Concomitant]
     Indication: ARRHYTHMIA
  8. LASIX [Concomitant]
     Indication: DRUG USE FOR UNKNOWN INDICATION
  9. LOSEC I.V. [Concomitant]
     Indication: OESOPHAGEAL DISORDER
  10. MYSOLINE [Concomitant]
     Indication: DYSKINESIA
  11. SYMBICORT [Concomitant]
     Indication: ASTHMA
  12. VENTOLIN [Concomitant]
     Indication: ASTHMA
  13. WARFARIN SODIUM [Concomitant]
     Indication: CARDIAC FAILURE CONGESTIVE

REACTIONS (9)
  - AMNESIA [None]
  - ATAXIA [None]
  - CONDITION AGGRAVATED [None]
  - DISORIENTATION [None]
  - FATIGUE [None]
  - GAIT DISTURBANCE [None]
  - MALAISE [None]
  - MINI MENTAL STATUS EXAMINATION ABNORMAL [None]
  - MUSCLE SPASMS [None]
